FAERS Safety Report 5797977-9 (Version None)
Quarter: 2008Q3

REPORT INFORMATION
  Report Type: 
  Country: None (occurrence: None)
  Receive Date: 20080702
  Receipt Date: 20080624
  Transmission Date: 20090109
  Serious: Yes (Other)
  Sender: FDA-Public Use
  Company Number: US-AMGEN-QUU289593

PATIENT
  Sex: Female

DRUGS (1)
  1. ENBREL [Suspect]
     Indication: DRUG USE FOR UNKNOWN INDICATION
     Route: 058
     Dates: end: 20080606

REACTIONS (9)
  - ALOPECIA [None]
  - ARTHRALGIA [None]
  - DIZZINESS [None]
  - FATIGUE [None]
  - NIGHT SWEATS [None]
  - PRODUCTIVE COUGH [None]
  - RHINORRHOEA [None]
  - SYSTEMIC LUPUS ERYTHEMATOSUS [None]
  - VISION BLURRED [None]
